FAERS Safety Report 7961987-3 (Version None)
Quarter: 2011Q4

REPORT INFORMATION
  Report Type: 
  Country: None (occurrence: None)
  Receive Date: 20111207
  Receipt Date: 20111125
  Transmission Date: 20120403
  Serious: Yes (Hospitalization)
  Sender: FDA-Public Use
  Company Number: FR-GILEAD-2011-0047265

PATIENT
  Sex: Female

DRUGS (3)
  1. TRUVADA [Suspect]
     Indication: HIV INFECTION
     Dosage: UNK
     Dates: start: 20110101
  2. KALETRA [Suspect]
     Indication: HIV INFECTION
     Dosage: UNK
     Route: 048
     Dates: start: 20110101
  3. CYCLOSPORINE [Suspect]
     Dosage: 0.5 %, UNK
     Route: 047
     Dates: start: 20080101

REACTIONS (1)
  - STRESS FRACTURE [None]
